FAERS Safety Report 5057381-8 (Version None)
Quarter: 2006Q3

REPORT INFORMATION
  Report Type: 
  Country: None (occurrence: None)
  Receive Date: 20060721
  Receipt Date: 20050907
  Transmission Date: 20061208
  Serious: No
  Sender: FDA-Public Use
  Company Number: US-GLAXOSMITHKLINE-A0573321A

PATIENT
  Age: 84 Year
  Sex: Female

DRUGS (7)
  1. AVANDIA [Suspect]
     Dosage: 1MG TWICE PER DAY
     Route: 048
  2. GLYBURIDE [Concomitant]
  3. ACYCLOVIR [Concomitant]
  4. OXYBUTYNIN [Concomitant]
  5. ENALAPRIL MALEATE [Concomitant]
  6. METFORMIN [Concomitant]
  7. AVANDAMET [Concomitant]

REACTIONS (3)
  - BLOOD GLUCOSE DECREASED [None]
  - HYPERHIDROSIS [None]
  - TREMOR [None]
